FAERS Safety Report 23055623 (Version 2)
Quarter: 2023Q4

REPORT INFORMATION
  Report Type: Spontaneous
  Country: US (occurrence: US)
  Receive Date: 20231011
  Receipt Date: 20231121
  Transmission Date: 20240110
  Serious: No
  Sender: FDA-Public Use
  Company Number: US-BAYER-2023A136087

PATIENT
  Age: 61 Year
  Sex: Female

DRUGS (1)
  1. BETASERON [Suspect]
     Active Substance: INTERFERON BETA-1B
     Dosage: UNK
     Dates: start: 2003

REACTIONS (3)
  - Muscle spasms [Recovered/Resolved]
  - Product dose omission issue [None]
  - Hypersensitivity [None]

NARRATIVE: CASE EVENT DATE: 20230701
